FAERS Safety Report 7668621-0 (Version None)
Quarter: 2011Q3

REPORT INFORMATION
  Report Type: 
  Country: None (occurrence: None)
  Receive Date: 20110808
  Receipt Date: 20110808
  Transmission Date: 20111222
  Serious: Yes (Other)
  Sender: FDA-Public Use
  Company Number: None

PATIENT
  Age: 56 Year
  Sex: Female
  Weight: 83.914 kg

DRUGS (1)
  1. TRANSDERM SCOP [Suspect]
     Indication: PROPHYLAXIS OF NAUSEA AND VOMITING
     Dosage: 1.5 MG
     Route: 062
     Dates: start: 20110802, end: 20110805

REACTIONS (4)
  - ARRHYTHMIA [None]
  - HEADACHE [None]
  - NAUSEA [None]
  - DRUG WITHDRAWAL SYNDROME [None]
